FAERS Safety Report 15749958 (Version 1)
Quarter: 2018Q4

REPORT INFORMATION
  Report Type: Spontaneous
  Country: IT (occurrence: IT)
  Receive Date: 20181221
  Receipt Date: 20181221
  Transmission Date: 20190205
  Serious: Yes (Other)
  Sender: FDA-Public Use
  Company Number: IT-TEVA-2018-IT-989739

PATIENT
  Age: 83 Year
  Sex: Male

DRUGS (1)
  1. DOXAZOSIN RATIOPHARM [Suspect]
     Active Substance: DOXAZOSIN\DOXAZOSIN MESYLATE
     Dosage: 2 MILLIGRAM DAILY;
     Route: 065

REACTIONS (2)
  - Abdominal pain upper [Unknown]
  - Dysentery [Unknown]
